FAERS Safety Report 4804960-6 (Version None)
Quarter: 2005Q4

REPORT INFORMATION
  Report Type: 
  Country: None (occurrence: None)
  Receive Date: 20051017
  Receipt Date: 20051006
  Transmission Date: 20060501
  Serious: Yes (Other)
  Sender: FDA-Public Use
  Company Number: 2005111715

PATIENT
  Age: 49 Year
  Sex: Female
  Weight: 90.7194 kg

DRUGS (9)
  1. NEURONTIN [Suspect]
     Indication: MUSCLE SPASMS
     Dosage: 1200 MG (400 MG, 3 IN 1 D)
  2. NEURONTIN [Suspect]
     Indication: PAIN
     Dosage: 1200 MG (400 MG, 3 IN 1 D)
  3. DILANTIN [Suspect]
     Indication: EPILEPSY
     Dosage: 600 MG (300 MG, 2 IN 1 D)
  4. DETROL [Suspect]
     Indication: ENURESIS
     Dates: start: 20050101
  5. DETROL [Suspect]
     Indication: HYPERTONIC BLADDER
     Dates: start: 20050101
  6. FUROSEMIDE [Concomitant]
  7. TOPAMAX [Concomitant]
  8. SEROQUEL [Concomitant]
  9. KLOR-CON [Concomitant]

REACTIONS (17)
  - ABASIA [None]
  - ARTHRITIS INFECTIVE [None]
  - BACK DISORDER [None]
  - CARDIAC DISORDER [None]
  - CYANOSIS [None]
  - DEFORMITY THORAX [None]
  - ENURESIS [None]
  - FATIGUE [None]
  - HIATUS HERNIA [None]
  - HYPERTONIC BLADDER [None]
  - INFECTION [None]
  - INSOMNIA [None]
  - LIMB DISCOMFORT [None]
  - LOCALISED INFECTION [None]
  - RENAL PAIN [None]
  - SPINAL DISORDER [None]
  - VICTIM OF CRIME [None]
